FAERS Safety Report 26093850 (Version 1)
Quarter: 2025Q4

REPORT INFORMATION
  Report Type: Spontaneous
  Country: US (occurrence: None)
  Receive Date: 20251126
  Receipt Date: 20251126
  Transmission Date: 20260118
  Serious: Yes (Hospitalization)
  Sender: FDA-CTU
  Company Number: None

PATIENT
  Sex: Female

DRUGS (5)
  1. BOTOX [Suspect]
     Active Substance: ONABOTULINUMTOXINA
     Indication: Migraine
     Dosage: OTHER STRENGTH : 200 UNITS;?OTHER QUANTITY : ADMINISTERED UP TP 200 UNITS;?OTHER FREQUENCY : IN HE MUSCLE EVERY 3 MONTHS ;?
     Route: 058
     Dates: start: 20191106
  2. IBUPROFEN [Concomitant]
     Active Substance: IBUPROFEN
  3. MELOXICAM [Concomitant]
     Active Substance: MELOXICAM
  4. METHOCARBAMOL [Concomitant]
     Active Substance: METHOCARBAMOL
  5. OMEPRAZOLE [Concomitant]
     Active Substance: OMEPRAZOLE

REACTIONS (2)
  - Urinary tract infection [None]
  - Diverticulitis [None]
